FAERS Safety Report 5010985-0 (Version None)
Quarter: 2006Q2

REPORT INFORMATION
  Report Type: 
  Country: None (occurrence: None)
  Receive Date: 20060523
  Receipt Date: 20060523
  Transmission Date: 20061013
  Serious: Yes (Hospitalization)
  Sender: FDA-Public Use
  Company Number: None

PATIENT
  Age: 52 Year
  Sex: Female
  Weight: 108 kg

DRUGS (2)
  1. ULTRAM [Suspect]
     Dosage: 1 TAB QID PRN PO
     Route: 048
  2. FLEXERIL [Suspect]
     Dosage: 1-2 TABS HS PO
     Route: 048

REACTIONS (4)
  - CONVULSION [None]
  - DRUG INTERACTION [None]
  - DYSKINESIA [None]
  - HOT FLUSH [None]
